FAERS Safety Report 5023421-5 (Version None)
Quarter: 2006Q2

REPORT INFORMATION
  Report Type: 
  Country: None (occurrence: None)
  Receive Date: 20060612
  Receipt Date: 20060531
  Transmission Date: 20061013
  Serious: Yes (Other)
  Sender: FDA-Public Use
  Company Number: 2006AP02550

PATIENT
  Age: 84 Year
  Sex: Male
  Weight: 47 kg

DRUGS (3)
  1. XYLOCAINE W/ EPINEPHRINE [Suspect]
     Indication: LOCAL ANAESTHESIA
     Dosage: 20 ML ADMINISTERED
     Route: 061
  2. SERENACE [Interacting]
     Indication: COGNITIVE DISORDER
     Route: 041
  3. MARCAIN INJECTION [Concomitant]
     Indication: LOCAL ANAESTHESIA
     Dosage: 2.5 ML ADMINISTERED
     Route: 037

REACTIONS (2)
  - BLOOD PRESSURE DECREASED [None]
  - DRUG INTERACTION [None]
